FAERS Safety Report 6119093-9 (Version None)
Quarter: 2009Q1

REPORT INFORMATION
  Report Type: 
  Country: None (occurrence: None)
  Receive Date: 20090316
  Receipt Date: 20080707
  Transmission Date: 20090719
  Serious: No
  Sender: FDA-Public Use
  Company Number: US-BAYER-200812876BCC

PATIENT
  Sex: Male

DRUGS (6)
  1. RID MOUSSE [Suspect]
     Indication: LICE INFESTATION
     Route: 061
     Dates: start: 20080625
  2. RID SHAMPOO [Suspect]
     Indication: LICE INFESTATION
     Route: 061
     Dates: start: 20080629
  3. RID SHAMPOO [Suspect]
     Route: 061
     Dates: start: 20080702
  4. RID SHAMPOO [Suspect]
     Route: 061
     Dates: start: 20080705
  5. RID EGG AND NIT COMB OUT GEL [Suspect]
     Indication: LICE INFESTATION
     Route: 061
     Dates: start: 20080629
  6. RID EGG AND NIT COMB OUT GEL [Suspect]
     Route: 061
     Dates: start: 20080707

REACTIONS (2)
  - LICE INFESTATION [None]
  - PRURITUS [None]
